FAERS Safety Report 8393276-X (Version None)
Quarter: 2012Q2

REPORT INFORMATION
  Report Type: 
  Country: None (occurrence: None)
  Receive Date: 20120529
  Receipt Date: 20120516
  Transmission Date: 20120825
  Serious: Yes (Other)
  Sender: FDA-Public Use
  Company Number: US-COVIDIEN/TYCO HEALTHCARE/MALLINCKRODT-T201201894

PATIENT
  Age: 68 Year
  Sex: Female
  Weight: 84 kg

DRUGS (28)
  1. ONDANSETRON [Suspect]
     Dosage: 4 MG, SINGLE
  2. HYDROMORPHONE HCL [Concomitant]
     Dosage: 0.4 MG, SINGLE
  3. OXYCODONE HCL [Concomitant]
     Dosage: UNK
  4. CALCIUM                            /00060701/ [Concomitant]
     Dosage: UNK
  5. FENTANYL CITRATE [Suspect]
     Dosage: 100 UG, SINGLE
  6. GABAPENTIN [Concomitant]
     Dosage: UNK
  7. TRIAMTERENE AND HYDROCHLOROTHIAZID [Concomitant]
     Dosage: UNK
  8. PROPOFOL [Concomitant]
     Indication: ANAESTHESIA
     Dosage: 200 MG, SINGLE
  9. NITROUS OXIDE W/ OXYGEN [Concomitant]
     Indication: ANAESTHESIA
     Dosage: 50/50 MIXTURE
  10. PAXIL [Suspect]
     Dosage: UNK
  11. OMEPRAZOLE [Concomitant]
     Dosage: UNK
  12. GABITRIL [Concomitant]
     Dosage: UNK
  13. CLONAZEPAM [Concomitant]
     Dosage: UNK
  14. WELLBUTRIN [Suspect]
     Dosage: UNK
  15. CYMBALTA [Suspect]
     Dosage: UNK
  16. SUCCINYLCHOLINE CHLORIDE [Concomitant]
     Indication: ANAESTHESIA
     Dosage: 120 MG, SINGLE
  17. FENTANYL CITRATE [Suspect]
     Indication: PAIN
     Dosage: 100 UG, SINGLE
  18. HYDROMORPHONE HCL [Concomitant]
     Dosage: 1.0 MG, SINGLE
  19. FOSAMAX [Concomitant]
     Dosage: UNK
  20. MULTIVITAMIN [Concomitant]
     Dosage: UNK
  21. DESFLURANE [Concomitant]
     Indication: ANAESTHESIA
     Dosage: 3.9% TO 7.2%
  22. FENTANYL CITRATE [Suspect]
     Indication: ANAESTHESIA
     Dosage: 50 UG, SINGLE
  23. LEVOTHYROXINE SODIUM [Concomitant]
     Dosage: UNK
  24. LISINOPRIL [Concomitant]
     Dosage: UNK
  25. SENNA                              /00142201/ [Concomitant]
     Dosage: UNK
  26. MIDAZOLAM [Concomitant]
     Indication: PREMEDICATION
     Dosage: UNK
  27. FLUODRICORTISONE [Concomitant]
     Dosage: UNK
  28. LIPITOR [Concomitant]
     Dosage: UNK

REACTIONS (2)
  - DRUG INTERACTION [None]
  - SEROTONIN SYNDROME [None]
